FAERS Safety Report 9300057 (Version 2)
Quarter: 2013Q2

REPORT INFORMATION
  Report Type: Spontaneous
  Country: US (occurrence: US)
  Receive Date: 20130521
  Receipt Date: 20130607
  Transmission Date: 20140414
  Serious: Yes (Hospitalization)
  Sender: FDA-Public Use
  Company Number: US-BAYER-2013-062207

PATIENT
  Age: 32 Year
  Sex: Female

DRUGS (2)
  1. YASMIN [Suspect]
     Indication: MENORRHAGIA
     Dosage: UNK
     Dates: start: 2002
  2. EFFEXOR XR [Concomitant]
     Dosage: 75 MG, UNK

REACTIONS (7)
  - Pulmonary embolism [Recovered/Resolved]
  - Pain [None]
  - Emotional distress [None]
  - General physical health deterioration [Recovered/Resolved]
  - Anxiety [None]
  - Injury [Recovered/Resolved]
  - Pain [Recovered/Resolved]
